FAERS Safety Report 6936990-2 (Version None)
Quarter: 2010Q3

REPORT INFORMATION
  Report Type: 
  Country: None (occurrence: None)
  Receive Date: 20100823
  Receipt Date: 20100809
  Transmission Date: 20110219
  Serious: Yes (Other)
  Sender: FDA-Public Use
  Company Number: PHHY2010BR53129

PATIENT
  Sex: Female

DRUGS (1)
  1. DIOVAN TRIPLE [Suspect]
     Dosage: 160/10/12.5 MG

REACTIONS (3)
  - CARDIOMEGALY [None]
  - GENERALISED OEDEMA [None]
  - OEDEMA PERIPHERAL [None]
